FAERS Safety Report 9633937 (Version 1)
Quarter: 2013Q4

REPORT INFORMATION
  Report Type: Spontaneous
  Country: US (occurrence: US)
  Receive Date: 20131021
  Receipt Date: 20131021
  Transmission Date: 20140711
  Serious: Yes (Other)
  Sender: FDA-Public Use
  Company Number: US-ASTRAZENECA-2013SE68733

PATIENT
  Sex: Female

DRUGS (2)
  1. PULMICORT FLEXHALER [Suspect]
     Dosage: 360 MCG 2 PUFFS BID
     Route: 055
     Dates: start: 20130207
  2. PULMICORT FLEXHALER [Suspect]
     Route: 055

REACTIONS (3)
  - Pulmonary oedema [Unknown]
  - Discomfort [Unknown]
  - Intentional drug misuse [Unknown]
